FAERS Safety Report 19043037 (Version 1)
Quarter: 2021Q1

REPORT INFORMATION
  Report Type: Spontaneous
  Country: US (occurrence: US)
  Receive Date: 20210322
  Receipt Date: 20210322
  Transmission Date: 20210420
  Serious: No
  Sender: FDA-Public Use
  Company Number: None

PATIENT

DRUGS (1)
  1. PROLIA [Suspect]
     Active Substance: DENOSUMAB
     Dosage: 60MG OTHER SUNCONJUNCTIVAL
     Route: 057
     Dates: start: 202103

REACTIONS (2)
  - Intercepted product dispensing error [None]
  - Transcription medication error [None]

NARRATIVE: CASE EVENT DATE: 20210322
